FAERS Safety Report 19813128 (Version 1)
Quarter: 2021Q3

REPORT INFORMATION
  Report Type: Spontaneous
  Country: US (occurrence: US)
  Receive Date: 20210907
  Receipt Date: 20210907
  Transmission Date: 20211014
  Serious: Yes (Life-Threatening)
  Sender: FDA-Public Use
  Company Number: None

PATIENT
  Age: 74 Year
  Sex: Male

DRUGS (1)
  1. MIDOSTAURIN (MIDOSTAURIN 25MG CAP, ORAL,UD) [Suspect]
     Active Substance: MIDOSTAURIN
     Indication: NEOPLASM MALIGNANT
     Dates: start: 20210714, end: 20210804

REACTIONS (6)
  - Haematemesis [None]
  - Haemorrhage [None]
  - Thrombocytosis [None]
  - Hyperbilirubinaemia [None]
  - Nausea [None]
  - Vomiting [None]

NARRATIVE: CASE EVENT DATE: 20210802
